FAERS Safety Report 5343458-6 (Version None)
Quarter: 2007Q2

REPORT INFORMATION
  Report Type: 
  Country: None (occurrence: None)
  Receive Date: 20070531
  Receipt Date: 20070515
  Transmission Date: 20071010
  Serious: Yes (Other)
  Sender: FDA-Public Use
  Company Number: DSA_61463_2007

PATIENT
  Age: 24 Month
  Sex: Female

DRUGS (2)
  1. DIASTAT /00017001/ ( DIASTAT) 5 MG [Suspect]
     Indication: CONVULSION
     Dosage: 5 MG PRN RECTAL
     Route: 054
     Dates: start: 20061221
  2. TRILEPTAL [Concomitant]

REACTIONS (4)
  - DEVICE LEAKAGE [None]
  - DEVICE MALFUNCTION [None]
  - INCORRECT DOSE ADMINISTERED [None]
  - PHARMACEUTICAL PRODUCT COMPLAINT [None]
